FAERS Safety Report 10480929 (Version 1)
Quarter: 2014Q3

REPORT INFORMATION
  Report Type: Spontaneous
  Country: US (occurrence: None)
  Receive Date: 20140908
  Receipt Date: 20140908
  Transmission Date: 20150326
  Serious: Yes (Other)
  Sender: FDA-Public Use
  Company Number: 382816

PATIENT
  Age: 70 Year
  Sex: Female
  Weight: 102.5 kg

DRUGS (14)
  1. METFORMIN [Concomitant]
     Active Substance: METFORMIN HYDROCHLORIDE
  2. NEURONTIN [Concomitant]
     Active Substance: GABAPENTIN
  3. CRESTOR (ROSUVASTATIN CALCICUM) [Concomitant]
  4. PLAVIX [Concomitant]
     Active Substance: CLOPIDOGREL BISULFATE
  5. PRILOSEC [Concomitant]
     Active Substance: OMEPRAZOLE MAGNESIUM
  6. GLIPIZIDE. [Concomitant]
     Active Substance: GLIPIZIDE
  7. ASPIRIN (ACETYLSALICYLIC ACID) [Concomitant]
     Active Substance: ASPIRIN
  8. TYLENOL EXTRA STRENGTH (PARACETAMOL) [Concomitant]
  9. AVAPRO [Concomitant]
     Active Substance: IRBESARTAN
  10. VICTOZA [Suspect]
     Active Substance: LIRAGLUTIDE
     Indication: TYPE 2 DIABETES MELLITUS
     Route: 058
     Dates: start: 20100628, end: 20110119
  11. ALLOPURINOL. [Concomitant]
     Active Substance: ALLOPURINOL
  12. METOPROLOL SUCCINATE. [Concomitant]
     Active Substance: METOPROLOL SUCCINATE
  13. NITROGLYCERIN (GLYCERYL TRINITRATE) [Concomitant]
  14. IMDUR (ISOSORBIDE MONONITRATE) [Concomitant]

REACTIONS (4)
  - Blood glucose increased [None]
  - Urinary tract infection [None]
  - Pancreatitis [None]
  - Weight increased [None]

NARRATIVE: CASE EVENT DATE: 201101
